FAERS Safety Report 7488732-2 (Version None)
Quarter: 2011Q2

REPORT INFORMATION
  Report Type: 
  Country: None (occurrence: None)
  Receive Date: 20110518
  Receipt Date: 20110503
  Transmission Date: 20111010
  Serious: Yes (Other)
  Sender: FDA-Public Use
  Company Number: US-BAYER-2011-039177

PATIENT
  Age: 86 Year
  Sex: Female
  Weight: 54 kg

DRUGS (6)
  1. PRESERVISION LUTEIN EYE VITA.+MIN.SUP.SOFTG. [Concomitant]
  2. HYGROTON [Concomitant]
  3. ASPIRIN [Suspect]
     Dosage: TOOK DAILY
  4. PREMARIN [Concomitant]
  5. ALEVE (CAPLET) [Suspect]
     Indication: PLANTAR FASCIITIS
     Dosage: 1 DF, QD
     Route: 048
     Dates: start: 20110422, end: 20110502
  6. POTASSIUM [POTASSIUM] [Concomitant]

REACTIONS (3)
  - PARAESTHESIA [None]
  - VAGINAL HAEMORRHAGE [None]
  - ABDOMINAL PAIN [None]
